FAERS Safety Report 15386066 (Version 2)
Quarter: 2018Q4

REPORT INFORMATION
  Report Type: Spontaneous
  Country: QA (occurrence: QA)
  Receive Date: 20180914
  Receipt Date: 20181010
  Transmission Date: 20190204
  Serious: Yes (Other)
  Sender: FDA-Public Use
  Company Number: QA-ROCHE-2182956

PATIENT
  Sex: Male

DRUGS (8)
  1. DOXORUBICIN [Concomitant]
     Active Substance: DOXORUBICIN
  2. GEMCITABINE [Concomitant]
     Active Substance: GEMCITABINE\GEMCITABINE HYDROCHLORIDE
  3. VINBLASTINE [Concomitant]
     Active Substance: VINBLASTINE
  4. JAVLOR [Concomitant]
  5. TECENTRIQ [Suspect]
     Active Substance: ATEZOLIZUMAB
     Indication: NEOPLASM MALIGNANT
     Dosage: 1 VIAL (1200MG/20ML)
     Route: 065
  6. CARBOPLATIN. [Concomitant]
     Active Substance: CARBOPLATIN
  7. METHOTREXATE. [Concomitant]
     Active Substance: METHOTREXATE
  8. CISPLATIN. [Concomitant]
     Active Substance: CISPLATIN

REACTIONS (3)
  - Therapeutic response decreased [Unknown]
  - Drug ineffective [Unknown]
  - Malignant neoplasm progression [Unknown]
